FAERS Safety Report 7949549 (Version 6)
Quarter: 2013Q2

REPORT INFORMATION
  Report Type: Spontaneous
  Country: DE (occurrence: DE)
  Receive Date: 20110518
  Receipt Date: 20130610
  Transmission Date: 20140414
  Serious: Yes (Hospitalization, Other)
  Sender: FDA-Public Use
  Company Number: DE-BAYER-2011-039060

PATIENT
  Age: 18 Year
  Sex: Female
  Weight: 46 kg

DRUGS (3)
  1. YASMINELLE [Suspect]
     Indication: CONTRACEPTION
     Dosage: 1 DF, QD
     Dates: start: 200810, end: 200910
  2. YAZ [Suspect]
     Indication: CONTRACEPTION
     Dosage: 1 DF, QD
     Dates: start: 20090426, end: 20110422
  3. SIMAGEL [Concomitant]

REACTIONS (28)
  - Weight decreased [Recovered/Resolved]
  - Cachexia [Recovered/Resolved]
  - Irritable bowel syndrome [Not Recovered/Not Resolved]
  - Dysuria [Recovered/Resolved]
  - Abdominal pain [Not Recovered/Not Resolved]
  - Diarrhoea [Not Recovered/Not Resolved]
  - Orthostatic intolerance [Not Recovered/Not Resolved]
  - Gastroenteritis [None]
  - Alopecia [Recovering/Resolving]
  - Bladder discomfort [Recovered/Resolved]
  - Migraine [Recovered/Resolved]
  - Cardiovascular disorder [Recovered/Resolved]
  - Circulatory collapse [Recovered/Resolved]
  - Loss of consciousness [Recovered/Resolved]
  - Pain in extremity [Recovered/Resolved]
  - Nausea [None]
  - Livedo reticularis [None]
  - Pulmonary embolism [None]
  - Hypokalaemia [None]
  - Tachycardia [Recovered/Resolved]
  - Dyspnoea [Recovered/Resolved]
  - Psychosomatic disease [None]
  - Paralysis [Recovered/Resolved]
  - Speech disorder [Recovered/Resolved]
  - General physical health deterioration [Recovered/Resolved]
  - Functional gastrointestinal disorder [Not Recovered/Not Resolved]
  - Metrorrhagia [None]
  - Headache [None]
